FAERS Safety Report 24860875 (Version 2)
Quarter: 2025Q3

REPORT INFORMATION
  Report Type: Report from Study
  Country: EU (occurrence: EU)
  Receive Date: 20250120
  Receipt Date: 20250803
  Transmission Date: 20251021
  Serious: Yes (Death, Hospitalization, Other)
  Sender: ALEXION PHARMACEUTICALS
  Company Number: None

PATIENT
  Age: 85 Year
  Sex: Male

DRUGS (39)
  1. DAPAGLIFLOZIN [Suspect]
     Active Substance: DAPAGLIFLOZIN
     Indication: Cardiac failure
     Dosage: 10 MILLIGRAM, QD
     Dates: start: 20230315, end: 20231004
  2. EDOXABAN [Suspect]
     Active Substance: EDOXABAN
     Indication: Thrombosis prophylaxis
     Dosage: 30 MILLIGRAM, QD
     Dates: start: 20230924, end: 20240702
  3. EDOXABAN [Suspect]
     Active Substance: EDOXABAN
     Dates: start: 20230315, end: 20231004
  4. BUMETANIDE [Suspect]
     Active Substance: BUMETANIDE
     Indication: Cardiac failure
  5. BUMETANIDE [Suspect]
     Active Substance: BUMETANIDE
     Dates: start: 20230927, end: 20231004
  6. VALSARTAN [Suspect]
     Active Substance: VALSARTAN
     Route: 065
  7. AMIODARONE HYDROCHLORIDE [Suspect]
     Active Substance: AMIODARONE HYDROCHLORIDE
     Indication: Arrhythmia prophylaxis
     Dosage: 200 MILLIGRAM, QD
     Dates: start: 20230309
  8. SACUBITRIL [Suspect]
     Active Substance: SACUBITRIL
     Indication: Product used for unknown indication
     Dosage: 1 MILLIGRAM, QD
     Route: 065
  9. SIMVASTATIN [Suspect]
     Active Substance: SIMVASTATIN
     Indication: Hypercholesterolaemia
     Dosage: 20 MILLIGRAM, QD
  10. SIMVASTATIN [Suspect]
     Active Substance: SIMVASTATIN
     Dosage: 20 MILLIGRAM, QD
  11. TAMSULOSIN HYDROCHLORIDE [Suspect]
     Active Substance: TAMSULOSIN HYDROCHLORIDE
     Indication: Prostatomegaly
     Dosage: 0.4 MILLIGRAM, QD
     Dates: start: 20240701
  12. TAMSULOSIN HYDROCHLORIDE [Suspect]
     Active Substance: TAMSULOSIN HYDROCHLORIDE
     Dosage: 0.4 MILLIGRAM, QD
     Dates: start: 20231006
  13. TAMSULOSIN HYDROCHLORIDE [Suspect]
     Active Substance: TAMSULOSIN HYDROCHLORIDE
     Dosage: 0.4 MILLIGRAM, QD
     Dates: start: 20231004
  14. PANTOPRAZOLE SODIUM [Suspect]
     Active Substance: PANTOPRAZOLE SODIUM
     Indication: Prophylaxis
     Dosage: 40 MILLIGRAM, QD
  15. ENTRESTO [Suspect]
     Active Substance: SACUBITRIL\VALSARTAN
     Indication: Cardiac failure
     Dosage: 1 MILLIGRAM, QD
     Dates: start: 20230522, end: 20231004
  16. ENTRESTO [Suspect]
     Active Substance: SACUBITRIL\VALSARTAN
     Dosage: 1 MILLIGRAM, QD
     Dates: start: 20230522, end: 20231004
  17. BISOPROLOL [Suspect]
     Active Substance: BISOPROLOL
     Indication: Hypertension
     Dosage: 2.5 MILLIGRAM, QD
     Dates: start: 20230426
  18. BISOPROLOL [Suspect]
     Active Substance: BISOPROLOL
     Dosage: 2.5 MILLIGRAM, QD
     Dates: start: 20240629
  19. CORDARONE [Suspect]
     Active Substance: AMIODARONE HYDROCHLORIDE
     Indication: Atrial fibrillation
     Dosage: 200 MILLIGRAM, QD
  20. TAMSULOSIN HYDROCHLORIDE [Suspect]
     Active Substance: TAMSULOSIN HYDROCHLORIDE
     Indication: Benign prostatic hyperplasia
     Dosage: 0.4 MILLIGRAM, QD
     Dates: start: 20231004
  21. TAMSULOSIN HYDROCHLORIDE [Suspect]
     Active Substance: TAMSULOSIN HYDROCHLORIDE
     Dosage: 0.4 MILLIGRAM, QD
     Dates: start: 20231006
  22. SACUBITRIL\VALSARTAN [Suspect]
     Active Substance: SACUBITRIL\VALSARTAN
     Indication: Product used for unknown indication
     Dosage: 1 MILLIGRAM, QD
     Route: 065
  23. SPIRONOLACTONE [Suspect]
     Active Substance: SPIRONOLACTONE
     Indication: Cardiac failure acute
  24. SPIRONOLACTONE [Suspect]
     Active Substance: SPIRONOLACTONE
  25. SPIRONOLACTONE [Suspect]
     Active Substance: SPIRONOLACTONE
  26. SPIRONOLACTONE [Suspect]
     Active Substance: SPIRONOLACTONE
  27. Ultra K [Concomitant]
     Indication: Product used for unknown indication
  28. 1-alpha leo [Concomitant]
     Indication: Vitamin D deficiency
  29. FENOTEROL HYDROBROMIDE [Concomitant]
     Active Substance: FENOTEROL HYDROBROMIDE
  30. ZOLPIDEM [Concomitant]
     Active Substance: ZOLPIDEM TARTRATE
     Indication: Product used for unknown indication
     Dosage: 10 MILLIGRAM, QD
  31. ACETAMINOPHEN [Concomitant]
     Active Substance: ACETAMINOPHEN
     Indication: Product used for unknown indication
  32. ACETAMINOPHEN [Concomitant]
     Active Substance: ACETAMINOPHEN
     Dosage: 500 UNK, QD
     Dates: start: 20240624, end: 20240624
  33. ACORAMIDIS [Concomitant]
     Active Substance: ACORAMIDIS
     Indication: Cardiac amyloidosis
     Dosage: 800 MILLIGRAM, QD
     Dates: start: 20220816, end: 20220930
  34. PIPERACILLIN SODIUM\TAZOBACTAM SODIUM [Concomitant]
     Active Substance: PIPERACILLIN SODIUM\TAZOBACTAM SODIUM
     Indication: Pneumonia
     Dosage: 4 GRAM, QD
     Dates: start: 20240625, end: 20240703
  35. ENOXAPARIN SODIUM [Concomitant]
     Active Substance: ENOXAPARIN SODIUM
     Indication: Thrombosis
  36. SCOPOLAMINE HYDROBROMIDE [Concomitant]
     Active Substance: SCOPOLAMINE HYDROBROMIDE
     Indication: Product used for unknown indication
  37. DARBEPOETIN ALFA [Concomitant]
     Active Substance: DARBEPOETIN ALFA
  38. FENOTEROL [Concomitant]
     Active Substance: FENOTEROL
  39. MORPHINE [Concomitant]
     Active Substance: MORPHINE

REACTIONS (22)
  - Pneumonia [Fatal]
  - Cardiac failure [Fatal]
  - Dehydration [Recovered/Resolved]
  - Cardiac failure [Recovered/Resolved]
  - Pneumonia [Recovered/Resolved]
  - Cardiac failure [Recovered/Resolved]
  - Atrioventricular block [Recovered/Resolved]
  - Pneumonia [Recovered/Resolved]
  - Acute kidney injury [Recovered/Resolved]
  - Loss of consciousness [Unknown]
  - Hypotension [Unknown]
  - Cardiac amyloidosis [Unknown]
  - Acute kidney injury [Recovered/Resolved]
  - Liver function test abnormal [Unknown]
  - Presyncope [Unknown]
  - Cardiomegaly [Unknown]
  - Diastolic dysfunction [Unknown]
  - Ejection fraction decreased [Unknown]
  - Dizziness [Unknown]
  - Dizziness [Unknown]
  - Haematuria [Unknown]
  - Wrong technique in product usage process [Unknown]
